FAERS Safety Report 13802465 (Version 1)
Quarter: 2017Q3

REPORT INFORMATION
  Report Type: Report from Study
  Country: GB (occurrence: GB)
  Receive Date: 20170728
  Receipt Date: 20170728
  Transmission Date: 20171127
  Serious: Yes (Hospitalization)
  Sender: FDA-Public Use
  Company Number: GB-JNJFOC-20161216412

PATIENT
  Age: 60 Year
  Sex: Female
  Weight: 96 kg

DRUGS (9)
  1. RAMIPRIL. [Concomitant]
     Active Substance: RAMIPRIL
     Route: 048
     Dates: start: 20161215
  2. ATORVASTATIN [Concomitant]
     Active Substance: ATORVASTATIN
     Route: 048
     Dates: start: 20161031
  3. BISOPROLOL [Concomitant]
     Active Substance: BISOPROLOL
     Route: 048
     Dates: start: 20140718
  4. EPLERENONE. [Concomitant]
     Active Substance: EPLERENONE
     Route: 048
     Dates: start: 20161031
  5. LANSOPRAZOLE. [Concomitant]
     Active Substance: LANSOPRAZOLE
     Route: 048
     Dates: start: 20161031
  6. SYMBICORT [Concomitant]
     Active Substance: BUDESONIDE\FORMOTEROL FUMARATE DIHYDRATE
     Route: 055
     Dates: start: 20100323
  7. STELARA [Suspect]
     Active Substance: USTEKINUMAB
     Indication: PSORIASIS
     Route: 058
     Dates: start: 2015
  8. ASPIRIN. [Concomitant]
     Active Substance: ASPIRIN
     Route: 048
     Dates: start: 19940326
  9. TICAGRELOR. [Concomitant]
     Active Substance: TICAGRELOR
     Route: 048
     Dates: start: 20161031

REACTIONS (5)
  - Fatigue [Not Recovered/Not Resolved]
  - Lower respiratory tract infection [Unknown]
  - Acute myocardial infarction [Recovering/Resolving]
  - Mitral valve incompetence [Recovering/Resolving]
  - Ventricular tachycardia [Recovering/Resolving]

NARRATIVE: CASE EVENT DATE: 20161021
